FAERS Safety Report 24160812 (Version 1)
Quarter: 2024Q3

REPORT INFORMATION
  Report Type: Spontaneous
  Country: GB (occurrence: GB)
  Receive Date: 20240801
  Receipt Date: 20240801
  Transmission Date: 20241017
  Serious: Yes (Other)
  Sender: CELLTRION
  Company Number: GB-CELLTRION INC.-2024GB018153

PATIENT

DRUGS (1)
  1. INFLIXIMAB [Suspect]
     Active Substance: INFLIXIMAB
     Indication: Crohn^s disease
     Dosage: 120 MG
     Route: 058
     Dates: start: 202407

REACTIONS (5)
  - Frequent bowel movements [Unknown]
  - Haematochezia [Unknown]
  - Dyschezia [Unknown]
  - Defaecation urgency [Unknown]
  - Constipation [Unknown]
